FAERS Safety Report 12796705 (Version 1)
Quarter: 2016Q3

REPORT INFORMATION
  Report Type: Report from Study
  Country: BR (occurrence: BR)
  Receive Date: 20160929
  Receipt Date: 20160929
  Transmission Date: 20161109
  Serious: Yes (Hospitalization)
  Sender: FDA-Public Use
  Company Number: BR-BIOGEN-2016BI00296732

PATIENT
  Sex: Female

DRUGS (2)
  1. BACLOFEN. [Concomitant]
     Active Substance: BACLOFEN
     Indication: PRODUCT USED FOR UNKNOWN INDICATION
     Route: 065
  2. TYSABRI [Suspect]
     Active Substance: NATALIZUMAB
     Indication: MULTIPLE SCLEROSIS
     Route: 065
     Dates: start: 20100606

REACTIONS (7)
  - Tuberculosis [Not Recovered/Not Resolved]
  - Musculoskeletal stiffness [Unknown]
  - Device breakage [Unknown]
  - Pain in extremity [Unknown]
  - Meningitis [Unknown]
  - Depression [Unknown]
  - Multiple sclerosis relapse [Not Recovered/Not Resolved]
